FAERS Safety Report 4577474-9 (Version None)
Quarter: 2005Q1

REPORT INFORMATION
  Report Type: 
  Country: None (occurrence: None)
  Receive Date: 20050208
  Receipt Date: 20050128
  Transmission Date: 20050727
  Serious: Yes (Life-Threatening, Other)
  Sender: FDA-Public Use
  Company Number: 2005023348

PATIENT
  Age: 21 Year
  Sex: Female

DRUGS (5)
  1. GABAPENTIN [Suspect]
     Indication: EPILEPSY
     Dosage: 1500 MG (500 MG, 3 IN 1 D), ORAL
     Route: 048
  2. VALPROATE SODIUM [Concomitant]
  3. CLOBAZAM (CLOBAZAM) [Concomitant]
  4. ANOVLAR (ETHINYLESTRADIOL, NORETHISTERONE ACETATE) [Concomitant]
  5. ZUCLOPENTHIXOL (ZUCLOPENTHIXOL) [Concomitant]

REACTIONS (2)
  - COUGH [None]
  - RETCHING [None]
